FAERS Safety Report 5713516-2 (Version None)
Quarter: 2008Q2

REPORT INFORMATION
  Report Type: 
  Country: None (occurrence: None)
  Receive Date: 20080422
  Receipt Date: 20080412
  Transmission Date: 20081010
  Serious: Yes (Hospitalization)
  Sender: FDA-Public Use
  Company Number: US-ELI_LILLY_AND_COMPANY-US200804003771

PATIENT
  Sex: Male
  Weight: 81.633 kg

DRUGS (17)
  1. BYETTA [Suspect]
     Indication: TYPE 2 DIABETES MELLITUS
     Dosage: 5 UG, 2/D
     Route: 058
     Dates: start: 20070101, end: 20070101
  2. BYETTA [Suspect]
     Dosage: 10 UG, 2/D
     Route: 058
     Dates: start: 20070101, end: 20070801
  3. BYETTA [Suspect]
     Dosage: 10 UG, 2/D
     Route: 058
     Dates: start: 20070801
  4. GLYBURIDE [Concomitant]
     Indication: TYPE 2 DIABETES MELLITUS
     Dosage: 10 MG, 2/D
     Route: 048
     Dates: end: 20070801
  5. GLYBURIDE [Concomitant]
     Dosage: 5 MG, DAILY (1/D)
     Route: 048
     Dates: start: 20070801
  6. ANTI-DIABETICS [Concomitant]
     Indication: TYPE 2 DIABETES MELLITUS
     Dosage: 50 MG, DAILY (1/D)
     Route: 048
     Dates: start: 20080101
  7. LANTUS [Concomitant]
     Indication: TYPE 2 DIABETES MELLITUS
     Dosage: 100 U, DAILY (1/D)
     Route: 058
     Dates: start: 20080101
  8. PLAVIX [Concomitant]
     Indication: CORONARY ARTERY DISEASE
     Dosage: 75 MG, DAILY (1/D)
     Route: 048
     Dates: start: 20070101
  9. TERAZOSIN HCL [Concomitant]
     Indication: CARDIAC DISORDER
     Dosage: 2 MG, DAILY (1/D)
     Route: 048
  10. DIGITEK [Concomitant]
     Indication: CARDIAC DISORDER
     Dosage: 0.25 MG, DAILY (1/D)
     Route: 048
  11. ISOSORBIDE DINITRATE [Concomitant]
     Indication: CARDIAC DISORDER
     Dosage: 30 MG, DAILY (1/D)
     Route: 048
  12. TRAMADOL HCL [Concomitant]
     Indication: PAIN
     Dosage: 50 MG, 3/D
     Route: 048
  13. GLUCOSAMIN /00943604/ [Concomitant]
     Indication: PAIN
     Dosage: UNK, DAILY (1/D)
     Route: 048
  14. HYDROCODONE BITARTRATE AND ACETAMINOPHEN [Concomitant]
     Indication: PAIN
     Dosage: UNK, 2/D
     Route: 048
     Dates: start: 19970101
  15. LIPITOR [Concomitant]
     Indication: BLOOD CHOLESTEROL
     Dosage: 10 MG, DAILY (1/D)
     Route: 048
  16. NITROGLYCERIN [Concomitant]
     Indication: CHEST PAIN
     Dosage: UNK, AS NEEDED
     Route: 045
  17. INSULIN [Concomitant]
     Indication: DIABETES MELLITUS
     Dates: start: 20070801, end: 20070801

REACTIONS (6)
  - CARDIAC FAILURE CONGESTIVE [None]
  - FATIGUE [None]
  - HEADACHE [None]
  - IMPLANTABLE DEFIBRILLATOR MALFUNCTION [None]
  - INCORRECT DOSE ADMINISTERED [None]
  - WEIGHT DECREASED [None]
